FAERS Safety Report 4570204-6 (Version None)
Quarter: 2005Q1

REPORT INFORMATION
  Report Type: 
  Country: None (occurrence: None)
  Receive Date: 20050202
  Receipt Date: 20050113
  Transmission Date: 20050727
  Serious: Yes (Hospitalization)
  Sender: FDA-Public Use
  Company Number: US_0501110372

PATIENT
  Age: 64 Year
  Sex: Male
  Weight: 80 kg

DRUGS (1)
  1. CIALIS [Suspect]
     Dosage: 20 MG/ONCE A DAY AS NEEDED
     Dates: start: 20040501

REACTIONS (7)
  - HEAD INJURY [None]
  - HEADACHE [None]
  - MENINGITIS [None]
  - POST PROCEDURAL COMPLICATION [None]
  - ROAD TRAFFIC ACCIDENT [None]
  - SELF-MEDICATION [None]
  - SUBDURAL HAEMATOMA [None]
